FAERS Safety Report 7734580-5 (Version None)
Quarter: 2011Q3

REPORT INFORMATION
  Report Type: 
  Country: None (occurrence: None)
  Receive Date: 20110907
  Receipt Date: 20110901
  Transmission Date: 20111222
  Serious: Yes (Hospitalization)
  Sender: FDA-Public Use
  Company Number: US-ABBOTT-11P-163-0850572-00

PATIENT
  Age: 72 Year
  Sex: Female

DRUGS (9)
  1. FOLIC ACID [Concomitant]
     Indication: PRODUCT USED FOR UNKNOWN INDICATION
  2. VIT D2 [Concomitant]
     Indication: PRODUCT USED FOR UNKNOWN INDICATION
  3. LISINOPRIL HCTZ 10 [Concomitant]
     Indication: HYPERTENSION
     Dosage: 10-125MG DAILY
  4. HUMIRA [Suspect]
     Dates: start: 20110808, end: 20110901
  5. VESICARE [Concomitant]
     Indication: URINARY INCONTINENCE
  6. PANTOPRAZOLE [Concomitant]
     Indication: GASTROOESOPHAGEAL REFLUX DISEASE
  7. HUMIRA [Suspect]
     Indication: RHEUMATOID ARTHRITIS
     Dates: start: 20110401, end: 20110401
  8. METHOTREXATE [Concomitant]
     Indication: PRODUCT USED FOR UNKNOWN INDICATION
     Dosage: SEVEN TABLETS WEEKLY
  9. PREMPRO [Concomitant]
     Indication: HOT FLUSH
     Dosage: 0.45/1.5MG DAILY

REACTIONS (9)
  - FLUID OVERLOAD [None]
  - GAIT DISTURBANCE [None]
  - UNEVALUABLE EVENT [None]
  - OEDEMA PERIPHERAL [None]
  - FLUID RETENTION [None]
  - DRUG DOSE OMISSION [None]
  - ASTHENIA [None]
  - HEADACHE [None]
  - HYPERTENSION [None]
